FAERS Safety Report 14328134 (Version 1)
Quarter: 2017Q4

REPORT INFORMATION
  Report Type: Spontaneous
  Country: MY (occurrence: MY)
  Receive Date: 20171227
  Receipt Date: 20171227
  Transmission Date: 20180321
  Serious: Yes (Other)
  Sender: FDA-Public Use
  Company Number: PHHY2017MY191392

PATIENT
  Age: 33 Year
  Sex: Female

DRUGS (1)
  1. CEFAZOLIN SANDOZ [Suspect]
     Active Substance: CEFAZOLIN
     Indication: INFECTION PROPHYLAXIS
     Dosage: 1 G, UNK
     Route: 042

REACTIONS (2)
  - Bradycardia [Recovered/Resolved]
  - Nausea [Recovered/Resolved]
